FAERS Safety Report 9837592 (Version 1)
Quarter: 2013Q4

REPORT INFORMATION
  Report Type: Spontaneous
  Country: US (occurrence: None)
  Receive Date: 20131205
  Receipt Date: 20131205
  Transmission Date: 20140711
  Serious: Yes (Hospitalization)
  Sender: FDA-Public Use
  Company Number: 163-POMAL-13072511

PATIENT
  Age: 71 Year
  Sex: Male

DRUGS (6)
  1. POMALYST (POMALIDOMIDE) (4 MILLIGRAM, CAPSULES) [Suspect]
     Indication: PLASMA CELL MYELOMA
     Dosage: 4 MG, 1 IN 1 D, PO
     Route: 048
     Dates: start: 201306
  2. ALLEGRA [Concomitant]
  3. PRILOSEC DR (OMEPRAZOLE) [Concomitant]
  4. CYCLOPHOSPHAMIDE (CYCLOPHOSPHAMIDE) [Concomitant]
  5. DEXAMETHASONE (DEXAMETHASONE) [Concomitant]
  6. VELCADE (BORTEZOMIB) [Concomitant]

REACTIONS (4)
  - Pneumonia [None]
  - Dry skin [None]
  - Fatigue [None]
  - Pruritus [None]
